FAERS Safety Report 16052734 (Version 1)
Quarter: 2019Q1

REPORT INFORMATION
  Report Type: Spontaneous
  Country: US (occurrence: US)
  Receive Date: 20190308
  Receipt Date: 20190308
  Transmission Date: 20190418
  Serious: Yes (Hospitalization)
  Sender: FDA-Public Use
  Company Number: US-TEVA-2019-US-1021970

PATIENT
  Sex: Male

DRUGS (1)
  1. WARFARIN [Suspect]
     Active Substance: WARFARIN
     Indication: THROMBOSIS

REACTIONS (5)
  - Dysgeusia [Recovering/Resolving]
  - Asthenia [Unknown]
  - Product substitution issue [Unknown]
  - Frequent bowel movements [Unknown]
  - Feeding disorder [Unknown]
